FAERS Safety Report 15941298 (Version 1)
Quarter: 2019Q1

REPORT INFORMATION
  Report Type: Spontaneous
  Country: CZ (occurrence: CZ)
  Receive Date: 20190208
  Receipt Date: 20190208
  Transmission Date: 20190417
  Serious: Yes (Hospitalization)
  Sender: FDA-Public Use
  Company Number: CZ-SEPTODONT-201905016

PATIENT
  Age: 7 Year
  Sex: Male
  Weight: 30 kg

DRUGS (1)
  1. SEPTANEST S ADRENALINEM 1:200000 [Suspect]
     Active Substance: ARTICAINE HYDROCHLORIDE\EPINEPHRINE BITARTRATE
     Indication: DENTAL LOCAL ANAESTHESIA
     Dosage: 1AMP. SEPTANEST WITH ADRENALIN 1:200000 INTRAGINGIVAL (DENTAL) BEFORE TOOTH EXTRACTION
     Route: 004
     Dates: start: 20190117, end: 20190117

REACTIONS (6)
  - Communication disorder [Recovered/Resolved]
  - Hyperventilation [Recovered/Resolved]
  - Gait disturbance [Recovered/Resolved]
  - Stiff tongue [Recovered/Resolved]
  - Tetany [Recovered/Resolved]
  - Hypertonia [Recovered/Resolved]

NARRATIVE: CASE EVENT DATE: 20190117
